FAERS Safety Report 7806741-8 (Version None)
Quarter: 2011Q4

REPORT INFORMATION
  Report Type: 
  Country: None (occurrence: None)
  Receive Date: 20111011
  Receipt Date: 20111004
  Transmission Date: 20120403
  Serious: Yes (Death, Life-Threatening, Hospitalization)
  Sender: FDA-Public Use
  Company Number: US-JNJFOC-20110611913

PATIENT
  Sex: Female
  Weight: 76.2 kg

DRUGS (41)
  1. ABACAVIR [Suspect]
     Indication: HIV INFECTION
     Dates: start: 20110816
  2. RITONAVIR [Concomitant]
     Indication: HIV INFECTION
     Route: 048
     Dates: start: 20110816, end: 20110904
  3. TRUVADA [Concomitant]
     Route: 048
     Dates: start: 20090922
  4. STROVITE FORTE [Concomitant]
     Route: 048
     Dates: start: 20030821
  5. SEROQUEL [Concomitant]
     Dates: start: 20110311
  6. IBUPROFEN [Concomitant]
     Route: 048
     Dates: start: 20070611
  7. ZITHROMAX [Concomitant]
     Dates: start: 20101123
  8. ALLEGRA [Concomitant]
     Route: 048
     Dates: start: 20110722
  9. DARUNAVIR ETHANOLATE [Suspect]
     Route: 048
     Dates: start: 20110816, end: 20110904
  10. WESTCORT [Concomitant]
     Route: 061
     Dates: start: 20110617
  11. PERCOCET [Concomitant]
     Dates: start: 20101110
  12. LOTRISONE [Concomitant]
     Dates: start: 20110722
  13. RITONAVIR [Concomitant]
     Route: 048
     Dates: start: 20110329, end: 20110531
  14. RALTEGRAVIR [Concomitant]
     Indication: HIV INFECTION
     Route: 048
     Dates: start: 20110329, end: 20110531
  15. ADVAIR DISKUS 100/50 [Concomitant]
     Route: 055
     Dates: start: 20091002
  16. LAMIVUDINE [Concomitant]
     Indication: HIV INFECTION
     Route: 048
     Dates: start: 20110816
  17. PROVENTIL [Concomitant]
     Indication: DYSPNOEA
     Route: 055
     Dates: start: 20040224
  18. STROVITE [Concomitant]
     Route: 048
     Dates: start: 20060707
  19. ETRAVIRINE [Suspect]
     Indication: HIV INFECTION
     Route: 048
     Dates: start: 20110329, end: 20110531
  20. DIOVAN HCT [Concomitant]
     Route: 048
     Dates: start: 20090922
  21. LAC-HYDRIN [Concomitant]
     Indication: DRY SKIN
     Route: 061
     Dates: start: 20110617
  22. PROMETHAZINE W/ CODEINE [Concomitant]
     Indication: COUGH
  23. PROMETHAZINE W/ CODEINE [Concomitant]
     Indication: UPPER RESPIRATORY TRACT INFECTION
  24. MULTI-VITAMINS [Concomitant]
  25. TRUVADA [Concomitant]
     Indication: HIV INFECTION
     Route: 048
     Dates: start: 20110329, end: 20110531
  26. METHADONE HCL [Concomitant]
     Dates: start: 20110805
  27. VALTREX [Concomitant]
     Route: 048
     Dates: start: 20091019
  28. BACTRIM [Concomitant]
     Route: 048
     Dates: start: 20090918
  29. NORVASC [Concomitant]
     Route: 048
     Dates: start: 20100921
  30. METFORMIN HYDROCHLORIDE [Concomitant]
     Route: 048
     Dates: start: 20110502
  31. DARUNAVIR ETHANOLATE [Suspect]
     Indication: HIV INFECTION
     Route: 048
     Dates: start: 20110329, end: 20110531
  32. RALTEGRAVIR [Concomitant]
     Route: 048
     Dates: start: 20110816, end: 20110904
  33. DIOVAN HCT [Concomitant]
     Route: 048
     Dates: start: 20110805
  34. POTASSIUM CHLORIDE [Concomitant]
     Route: 048
     Dates: start: 20091123
  35. AMBIEN [Concomitant]
     Route: 048
     Dates: start: 20091020
  36. LOMOTIL [Concomitant]
     Indication: DIARRHOEA
     Route: 048
     Dates: start: 20100222
  37. LIPITOR [Concomitant]
     Route: 048
     Dates: start: 20110826
  38. ULTRACET [Concomitant]
  39. METHADONE HCL [Concomitant]
     Dates: start: 20090818
  40. ADVAIR DISKUS 100/50 [Concomitant]
     Route: 055
     Dates: start: 20070820
  41. VALSARTAN [Concomitant]

REACTIONS (5)
  - HEPATIC FAILURE [None]
  - RASH [None]
  - SEPTIC SHOCK [None]
  - RENAL FAILURE ACUTE [None]
  - UROSEPSIS [None]
